FAERS Safety Report 4440492-5 (Version None)
Quarter: 2004Q3

REPORT INFORMATION
  Report Type: 
  Country: None (occurrence: None)
  Receive Date: 20040903
  Receipt Date: 20020719
  Transmission Date: 20050211
  Serious: Yes (Hospitalization)
  Sender: FDA-Public Use
  Company Number: PHBS2002VE08659

PATIENT
  Age: 34 Year
  Sex: Female
  Weight: 101 kg

DRUGS (2)
  1. STARLIX [Suspect]
     Dosage: 240 MG/DAY
     Route: 048
     Dates: start: 20020501
  2. STARLIX [Suspect]
     Dosage: 120 MG/DAY
     Route: 048

REACTIONS (6)
  - ABORTION [None]
  - DEPRESSION [None]
  - DIZZINESS [None]
  - DRUG EXPOSURE DURING PREGNANCY [None]
  - OEDEMA [None]
  - VAGINAL HAEMORRHAGE [None]
